FAERS Safety Report 21066729 (Version 2)
Quarter: 2022Q3

REPORT INFORMATION
  Report Type: Spontaneous
  Country: US (occurrence: US)
  Receive Date: 20220712
  Receipt Date: 20220818
  Transmission Date: 20221027
  Serious: No
  Sender: FDA-Public Use
  Company Number: US-JNJFOC-20220703113

PATIENT
  Age: 61 Year
  Sex: Male
  Weight: 82.628 kg

DRUGS (6)
  1. SPRAVATO [Suspect]
     Active Substance: ESKETAMINE
     Indication: Depression
     Dosage: 3 VIALS OF 28 MG
     Dates: start: 20220626, end: 20220628
  2. BUPROPION [Concomitant]
     Active Substance: BUPROPION
     Indication: Major depression
  3. DULOXETINE [Concomitant]
     Active Substance: DULOXETINE
     Indication: Major depression
  4. DULOXETINE [Concomitant]
     Active Substance: DULOXETINE
     Indication: Anxiety
  5. CELECOXIB [Concomitant]
     Active Substance: CELECOXIB
     Indication: Arthritis
  6. CLONAZEPAM [Concomitant]
     Active Substance: CLONAZEPAM
     Indication: Anxiety
     Dosage: 0.5 MG AS NEEDED

REACTIONS (1)
  - Hypertension [Recovered/Resolved]

NARRATIVE: CASE EVENT DATE: 20220628
